FAERS Safety Report 5620540-7 (Version None)
Quarter: 2008Q1

REPORT INFORMATION
  Report Type: 
  Country: None (occurrence: None)
  Receive Date: 20080208
  Receipt Date: 20080207
  Transmission Date: 20080703
  Serious: Yes (Life-Threatening)
  Sender: FDA-Public Use
  Company Number: US-GILEAD-2008-0015082

PATIENT
  Sex: Male
  Weight: 76.272 kg

DRUGS (11)
  1. AMBRISENTAN [Suspect]
     Indication: PULMONARY HYPERTENSION
     Dates: start: 20070809
  2. LUPRON [Concomitant]
  3. BICALUTAMIDE [Concomitant]
  4. AMLODIPINE BESYLATE [Concomitant]
     Dates: start: 20071029
  5. FELODIPINE [Concomitant]
     Dates: start: 19930101, end: 20071029
  6. LASIX [Concomitant]
     Dates: start: 20070401, end: 20071107
  7. FOSINOPRIL SODIUM [Concomitant]
     Dates: start: 20041029
  8. OMEPRAZOLE [Concomitant]
     Dates: start: 20060101
  9. ALBUTEROL [Concomitant]
  10. SOTALOL HYDROCHLORIDE [Concomitant]
     Dates: start: 20051001
  11. ASPIRIN [Concomitant]
     Dates: start: 20051001

REACTIONS (1)
  - RECURRENT CANCER [None]
